FAERS Safety Report 26124619 (Version 1)
Quarter: 2025Q4

REPORT INFORMATION
  Report Type: Spontaneous
  Country: JP (occurrence: JP)
  Receive Date: 20251205
  Receipt Date: 20251205
  Transmission Date: 20260118
  Serious: Yes (Other)
  Sender: GLAXOSMITHKLINE
  Company Number: JP-GSK-JP2025154529

PATIENT

DRUGS (1)
  1. MOMELOTINIB [Suspect]
     Active Substance: MOMELOTINIB
     Indication: Myelofibrosis
     Dosage: UNK

REACTIONS (5)
  - Blast cell count increased [Unknown]
  - Leukaemia [Unknown]
  - Myelofibrosis [Unknown]
  - B symptoms [Unknown]
  - Therapeutic response decreased [Unknown]
